FAERS Safety Report 9988670 (Version 2)
Quarter: 2014Q1

REPORT INFORMATION
  Report Type: Spontaneous
  Country: US (occurrence: US)
  Receive Date: 20140310
  Receipt Date: 20140310
  Transmission Date: 20141002
  Serious: Yes (Other)
  Sender: FDA-Public Use
  Company Number: US-BEH-2013034721

PATIENT
  Age: 33 Year
  Sex: Male
  Weight: 117 kg

DRUGS (17)
  1. HIZENTRA [Suspect]
     Dosage: 1 GM OVER 1 TO 2 HOURS IN 3 TO 4 SITES
     Route: 058
     Dates: start: 20130211, end: 20130211
  2. HIZENTRA [Suspect]
     Dosage: 2 GM OVER 1 TO 2 HOURS IN 3 TO 4 SITES
     Route: 058
     Dates: start: 20130211, end: 20130211
  3. HIZENTRA [Suspect]
     Dosage: 4 GM OVER 1 TO 2 HOURS IN 3 TO 4 SITES
     Route: 058
     Dates: start: 20130211, end: 20130211
  4. HIZENTRA [Suspect]
     Dosage: 1 GM 5 ML VIAL; 3-4 SITES OVER 1-2 HOURS
     Route: 058
  5. HIZENTRA [Suspect]
     Dosage: 2 GM 10 ML VIAL; 3-4 SITES OVER 1-2 HOURS
     Route: 058
  6. HIZENTRA [Suspect]
     Dosage: 4 GM 20 ML VIAL; 3-4 SITES OVER 1-2 HOURS
     Route: 058
  7. HIZENTRA [Suspect]
     Indication: NEUROPATHY PERIPHERAL
     Dosage: 1 GM 5 ML VIAL; FREEDOM 60 PUMP OVER 1-2 HOURS
     Route: 058
  8. HIZENTRA [Suspect]
     Dosage: 2 GM 10 ML VIAL; FREEDOM 60 PUMP OVER 1-2 HOURS
     Route: 058
  9. HIZENTRA [Suspect]
     Dosage: 4 GM 20 ML VIAL; FREEDOM 60 PUMP OVER 1-2 HOURS
     Route: 058
  10. HIZENTRA [Suspect]
     Dosage: 4 GM 20ML VIAL; IN JAN2014
     Route: 058
  11. HIZENTRA [Suspect]
     Dosage: 10 GM 50 ML VIAL; IN JAN2014
     Route: 058
  12. DIPHENHYDRAMINE [Concomitant]
     Indication: PREMEDICATION
  13. EPINEPHRINE [Concomitant]
     Indication: PREMEDICATION
  14. PROAIR [Concomitant]
     Dosage: 90 MCG; HFA
     Route: 055
  15. GENTAMICIN [Concomitant]
     Dosage: 0.1%
  16. HYDROCODONE/ACETAMINOPHEN [Concomitant]
     Dosage: 5-325
  17. ACETAMINOPHEN [Concomitant]
     Dosage: CAPLET

REACTIONS (6)
  - Movement disorder [Unknown]
  - Infusion site infection [Unknown]
  - Pain [Unknown]
  - Pain in extremity [Unknown]
  - Headache [Recovered/Resolved]
  - Injection site infection [Not Recovered/Not Resolved]
